FAERS Safety Report 5190388-9 (Version None)
Quarter: 2006Q4

REPORT INFORMATION
  Report Type: 
  Country: None (occurrence: None)
  Receive Date: 20061222
  Receipt Date: 20060511
  Transmission Date: 20070319
  Serious: Yes (Death, Life-Threatening, Hospitalization, Disabling)
  Sender: FDA-Public Use
  Company Number: PHHO2006DE07660

PATIENT
  Age: 54 Year
  Sex: Male
  Weight: 80.6 kg

DRUGS (5)
  1. PREDNISON [Concomitant]
     Indication: NERVOUS SYSTEM DISORDER
  2. ZOLEDRONIC ACID [Suspect]
     Indication: METASTASES TO BONE
     Dosage: 4MG EVERY  3 WEEKS
     Route: 042
     Dates: start: 20060307, end: 20061113
  3. ACETAMINOPHEN [Concomitant]
     Indication: PAIN
  4. INTERFERON [Concomitant]
     Indication: RENAL CELL CARCINOMA STAGE UNSPECIFIED
  5. RANITIDINE HYDROCHLORIDE [Concomitant]

REACTIONS (14)
  - BONE DISORDER [None]
  - BONE LESION [None]
  - DENTAL OPERATION [None]
  - ERYTHEMA [None]
  - FISTULA [None]
  - GINGIVAL INFECTION [None]
  - LUNG DISORDER [None]
  - MALIGNANT NEOPLASM PROGRESSION [None]
  - OSTEONECROSIS [None]
  - PAIN [None]
  - PURULENCE [None]
  - RENAL CELL CARCINOMA STAGE UNSPECIFIED [None]
  - SWELLING [None]
  - TOOTH INFECTION [None]
